FAERS Safety Report 5958710-0 (Version None)
Quarter: 2008Q4

REPORT INFORMATION
  Report Type: 
  Country: None (occurrence: None)
  Receive Date: 20081119
  Receipt Date: 20081114
  Transmission Date: 20090506
  Serious: Yes (Hospitalization, Other)
  Sender: FDA-Public Use
  Company Number: RO-ROXANE LABORATORIES, INC.-2008-RO-00231RO

PATIENT
  Age: 14 Year
  Sex: Female

DRUGS (6)
  1. METHOTREXATE [Suspect]
     Indication: DERMATOMYOSITIS
  2. METHOTREXATE [Suspect]
     Indication: TONSILLITIS
  3. COTRIM [Suspect]
     Indication: DERMATOMYOSITIS
  4. COTRIM [Suspect]
     Indication: TONSILLITIS
  5. NON-STEROIDAL DRUG [Suspect]
     Indication: TONSILLITIS
  6. NON-STEROIDAL DRUG [Suspect]
     Indication: DERMATOMYOSITIS

REACTIONS (2)
  - ACUTE HEPATIC FAILURE [None]
  - OVERDOSE [None]
